FAERS Safety Report 9268596 (Version 2)
Quarter: 2013Q3

REPORT INFORMATION
  Report Type: Spontaneous
  Country: US (occurrence: US)
  Receive Date: 20130502
  Receipt Date: 20130929
  Transmission Date: 20140515
  Serious: Yes (Other)
  Sender: FDA-Public Use
  Company Number: US-OTSUKA-US-2013-10785

PATIENT
  Sex: 0

DRUGS (1)
  1. SAMSCA [Suspect]
     Dosage: UNK

REACTIONS (1)
  - Blood sodium increased [Unknown]
